FAERS Safety Report 7784955-3 (Version None)
Quarter: 2011Q3

REPORT INFORMATION
  Report Type: 
  Country: None (occurrence: None)
  Receive Date: 20110928
  Receipt Date: 20110922
  Transmission Date: 20111222
  Serious: Yes (Hospitalization, Other)
  Sender: FDA-Public Use
  Company Number: US-RB-032318-11

PATIENT
  Sex: Female

DRUGS (1)
  1. SUBOXONE [Suspect]
     Indication: DRUG DEPENDENCE
     Route: 060
     Dates: start: 20040101

REACTIONS (10)
  - OVARIAN CYST [None]
  - VOMITING [None]
  - NAUSEA [None]
  - DEHYDRATION [None]
  - FEELING ABNORMAL [None]
  - CONFUSIONAL STATE [None]
  - MEMORY IMPAIRMENT [None]
  - LOSS OF CONSCIOUSNESS [None]
  - UTERINE LEIOMYOMA [None]
  - RETCHING [None]
